FAERS Safety Report 12750640 (Version 3)
Quarter: 2017Q2

REPORT INFORMATION
  Report Type: Report from Study
  Country: US (occurrence: US)
  Receive Date: 20160916
  Receipt Date: 20170405
  Transmission Date: 20170830
  Serious: Yes (Hospitalization)
  Sender: FDA-Public Use
  Company Number: US-ACTELION-A-NJ2016-140099

PATIENT
  Age: 82 Year
  Sex: Female

DRUGS (9)
  1. AMLODIPINE [Concomitant]
     Active Substance: AMLODIPINE BESYLATE
     Dosage: 5 MG, QD
  2. AVAPRO [Concomitant]
     Active Substance: IRBESARTAN
     Dosage: 300 MG, QD
  3. PAXIL [Concomitant]
     Active Substance: PAROXETINE HYDROCHLORIDE
     Dosage: 10 MG, QD
  4. COUMADIN [Concomitant]
     Active Substance: WARFARIN SODIUM
     Dosage: 4 MG, QD
  5. SYNTHROID [Concomitant]
     Active Substance: LEVOTHYROXINE SODIUM
     Dosage: 0.1 MCG, QD
  6. PRAVASTATIN. [Concomitant]
     Active Substance: PRAVASTATIN
     Dosage: 20 MG, QD
  7. OPSUMIT [Suspect]
     Active Substance: MACITENTAN
     Indication: PULMONARY ARTERIAL HYPERTENSION
     Dosage: 10 MG, QD
     Route: 048
     Dates: start: 201601
  8. METOPROLOL. [Concomitant]
     Active Substance: METOPROLOL
     Dosage: 1 MG, BID
  9. POTASSIUM [Concomitant]
     Active Substance: POTASSIUM
     Dosage: 20 MG, BID

REACTIONS (18)
  - Pulmonary oedema [Unknown]
  - Pneumonia bacterial [Unknown]
  - Dyspnoea [Recovered/Resolved]
  - Heart rate increased [Recovered/Resolved]
  - Internal haemorrhage [Unknown]
  - Cardiomegaly [Unknown]
  - Cystitis [Recovered/Resolved]
  - Cardiac disorder [Not Recovered/Not Resolved]
  - Peripheral swelling [Recovering/Resolving]
  - Pulmonary arterial hypertension [Unknown]
  - Swelling [Unknown]
  - Insomnia [Unknown]
  - Cardiac failure congestive [Unknown]
  - Weight increased [Recovered/Resolved]
  - Hypotension [Recovered/Resolved]
  - Heart rate decreased [Recovered/Resolved]
  - Rash [Recovering/Resolving]
  - Joint warmth [Recovering/Resolving]

NARRATIVE: CASE EVENT DATE: 2016
